FAERS Safety Report 9225457 (Version 1)
Quarter: 2013Q2

REPORT INFORMATION
  Report Type: Report from Study
  Country: GB (occurrence: GB)
  Receive Date: 20130411
  Receipt Date: 20130411
  Transmission Date: 20140414
  Serious: Yes (Life-Threatening)
  Sender: FDA-Public Use
  Company Number: GB-ROCHE-1212115

PATIENT
  Age: 71 Year
  Sex: Male
  Weight: 78 kg

DRUGS (8)
  1. CISPLATIN [Suspect]
     Indication: ADENOCARCINOMA
     Route: 042
     Dates: start: 20121003, end: 20121114
  2. CAPECITABINE [Suspect]
     Indication: ADENOCARCINOMA
     Route: 048
     Dates: start: 20121003, end: 20121114
  3. BEVACIZUMAB [Suspect]
     Indication: ADENOCARCINOMA
     Route: 042
     Dates: start: 20121003, end: 20121114
  4. EPIRUBICIN [Suspect]
     Indication: ADENOCARCINOMA
     Route: 042
     Dates: start: 20121003, end: 20121114
  5. PERINDOPRIL [Concomitant]
     Route: 048
  6. SIMVASTATIN [Concomitant]
     Route: 048
  7. GABAPENTIN [Concomitant]
     Route: 048
  8. METFORMIN [Concomitant]
     Route: 048

REACTIONS (1)
  - Cardio-respiratory arrest [Recovered/Resolved]
